FAERS Safety Report 8890802 (Version 2)
Quarter: 2012Q4

REPORT INFORMATION
  Report Type: 
  Country: JP (occurrence: JP)
  Receive Date: 20121107
  Receipt Date: 20121210
  Transmission Date: 20130627
  Serious: Yes (Death, Other)
  Sender: FDA-Public Use
  Company Number: JP-ROCHE-1152020

PATIENT
  Age: 75 Year
  Sex: Male

DRUGS (5)
  1. AVASTIN [Suspect]
     Indication: LARGE INTESTINE CARCINOMA
     Dosage: Five courses
     Route: 041
     Dates: start: 2012, end: 20121010
  2. IRINOTECAN HYDROCHLORIDE [Concomitant]
     Indication: LARGE INTESTINE CARCINOMA
     Dosage: Uncertain dosag, five courses
     Route: 041
     Dates: start: 2012, end: 20121010
  3. LEVOFOLINATE [Concomitant]
     Indication: LARGE INTESTINE CARCINOMA
     Dosage: Uncertain dosag, five courses
     Route: 041
     Dates: start: 2012, end: 20121010
  4. FLUOROURACIL [Concomitant]
     Indication: LARGE INTESTINE CARCINOMA
     Dosage: Uncertain dosag, five courses
     Route: 040
     Dates: start: 2012, end: 20121010
  5. FLUOROURACIL [Concomitant]
     Indication: LARGE INTESTINE CARCINOMA
     Dosage: Uncertain dosag, five courses
     Route: 041
     Dates: start: 2012, end: 201210

REACTIONS (4)
  - Death [Fatal]
  - White blood cell count decreased [Unknown]
  - Nausea [Unknown]
  - Vomiting [Unknown]
